FAERS Safety Report 19693228 (Version 2)
Quarter: 2021Q3

REPORT INFORMATION
  Report Type: Spontaneous
  Country: FR (occurrence: FR)
  Receive Date: 20210813
  Receipt Date: 20210820
  Transmission Date: 20211014
  Serious: Yes (Death, Other)
  Sender: FDA-Public Use
  Company Number: FR-SUN PHARMACEUTICAL INDUSTRIES LTD-2021RR-307683

PATIENT
  Age: 90 Year
  Sex: Male

DRUGS (12)
  1. XARELTO [Suspect]
     Active Substance: RIVAROXABAN
     Indication: ARRHYTHMIA
  2. MACROGOL 4000 ARROW 10 G, POUDRE POUR SOLUTION BUVABLE EN SACHET [Concomitant]
     Indication: PRODUCT USED FOR UNKNOWN INDICATION
     Dosage: UNK
     Route: 065
  3. LASILIX RETARD 60 MG, GELULE [Concomitant]
     Active Substance: FUROSEMIDE
     Indication: PRODUCT USED FOR UNKNOWN INDICATION
     Dosage: UNK
     Route: 065
  4. METFORMIN [Suspect]
     Active Substance: METFORMIN HYDROCHLORIDE
     Indication: WRONG PATIENT
     Dosage: 1 GRAM, IN TOTAL
     Route: 048
     Dates: start: 20210707, end: 20210707
  5. ELIQUIS [Suspect]
     Active Substance: APIXABAN
     Indication: WRONG PATIENT
     Dosage: 5 MILLIGRAM, IN TOTAL
     Route: 048
     Dates: start: 20210707, end: 20210707
  6. LEVOTHYROX [Concomitant]
     Active Substance: LEVOTHYROXINE
     Indication: PRODUCT USED FOR UNKNOWN INDICATION
     Dosage: UNK
     Route: 065
  7. NEBIVOLOL. [Concomitant]
     Active Substance: NEBIVOLOL
     Indication: PRODUCT USED FOR UNKNOWN INDICATION
     Dosage: UNK
     Route: 065
  8. TAMSULOSIN [Suspect]
     Active Substance: TAMSULOSIN
     Indication: WRONG PATIENT
     Dosage: 0.4 MILLIGRAM, IN TOTAL
     Route: 048
     Dates: start: 20210707, end: 20210707
  9. DOLIPRANE [Suspect]
     Active Substance: ACETAMINOPHEN
     Indication: WRONG PATIENT
     Dosage: 1 GRAM, IN TOTAL
     Route: 048
     Dates: start: 20210707, end: 20210707
  10. RAMIPRIL. [Suspect]
     Active Substance: RAMIPRIL
     Indication: WRONG PATIENT
     Dosage: 2.5 MILLIGRAM, IN TOTAL
     Route: 048
     Dates: start: 20210707, end: 20210707
  11. XARELTO [Suspect]
     Active Substance: RIVAROXABAN
     Dosage: 10 MILLIGRAM, IN TOTAL
     Route: 048
     Dates: start: 20210707, end: 20210707
  12. IRBESARTAN. [Concomitant]
     Active Substance: IRBESARTAN
     Indication: PRODUCT USED FOR UNKNOWN INDICATION
     Dosage: UNK
     Route: 065

REACTIONS (2)
  - Wrong patient received product [Recovered/Resolved]
  - Death [Fatal]

NARRATIVE: CASE EVENT DATE: 20210707
